FAERS Safety Report 19067263 (Version 2)
Quarter: 2021Q4

REPORT INFORMATION
  Report Type: Spontaneous
  Country: GB (occurrence: GB)
  Receive Date: 20210329
  Receipt Date: 20211106
  Transmission Date: 20220304
  Serious: Yes (Other)
  Sender: FDA-Public Use
  Company Number: GB-MHRA-EYC 00243847

PATIENT
  Sex: Female
  Weight: 46.26 kg

DRUGS (3)
  1. BISOPROLOL [Suspect]
     Active Substance: BISOPROLOL
     Indication: Blood pressure inadequately controlled
     Dosage: 1.25 MILLIGRAM
     Route: 048
     Dates: start: 20190328
  2. SYMBICORT [Suspect]
     Active Substance: BUDESONIDE\FORMOTEROL FUMARATE DIHYDRATE
     Indication: Hypertension
     Dosage: 50 MILLIGRAM, TWO TIMES A DAY
     Route: 055
     Dates: start: 20160503
  3. SYMBICORT [Suspect]
     Active Substance: BUDESONIDE\FORMOTEROL FUMARATE DIHYDRATE
     Dosage: 50MG TWICE A DAY
     Route: 055
     Dates: start: 20160503

REACTIONS (6)
  - Adverse drug reaction [Recovered/Resolved with Sequelae]
  - Medication error [Unknown]
  - Hypertension [Recovered/Resolved with Sequelae]
  - Dyspnoea [Recovered/Resolved with Sequelae]
  - Speech disorder [Recovered/Resolved with Sequelae]
  - Head discomfort [Recovered/Resolved with Sequelae]

NARRATIVE: CASE EVENT DATE: 20160707
